FAERS Safety Report 14505902 (Version 2)
Quarter: 2018Q1

REPORT INFORMATION
  Report Type: Spontaneous
  Country: US (occurrence: US)
  Receive Date: 20180208
  Receipt Date: 20180223
  Transmission Date: 20180509
  Serious: Yes (Life-Threatening, Hospitalization)
  Sender: FDA-Public Use
  Company Number: US-TEVA-2018-US-855744

PATIENT
  Age: 49 Year
  Sex: Male

DRUGS (4)
  1. LORAZEPAM. [Concomitant]
     Active Substance: LORAZEPAM
     Indication: ALCOHOL WITHDRAWAL SYNDROME
     Route: 065
  2. FAMOTIDINE. [Interacting]
     Active Substance: FAMOTIDINE
     Indication: NAUSEA
     Route: 042
  3. ONDANSETRON [Suspect]
     Active Substance: ONDANSETRON
     Indication: NAUSEA
     Route: 042
  4. DOFETILIDE. [Interacting]
     Active Substance: DOFETILIDE
     Indication: OVERDOSE
     Dosage: 2000 MICROGRAM DAILY;
     Route: 065

REACTIONS (3)
  - Electrocardiogram QT prolonged [Recovering/Resolving]
  - Cardiac arrest [Recovering/Resolving]
  - Drug interaction [Recovering/Resolving]
